FAERS Safety Report 6502864-4 (Version None)
Quarter: 2009Q4

REPORT INFORMATION
  Report Type: 
  Country: None (occurrence: None)
  Receive Date: 20091201
  Receipt Date: 20090406
  Transmission Date: 20100525
  Serious: Yes (Hospitalization)
  Sender: FDA-Public Use
  Company Number: 190897USA

PATIENT
  Age: 12 Year
  Sex: Male

DRUGS (1)
  1. CALCITRIOL [Suspect]
     Indication: HYPOPARATHYROIDISM
     Dosage: THREE TABLETS A DAY, ORAL
     Route: 048

REACTIONS (2)
  - BLOOD CALCIUM DECREASED [None]
  - DRUG EFFECT DECREASED [None]
